FAERS Safety Report 4505874-1 (Version None)
Quarter: 2004Q4

REPORT INFORMATION
  Report Type: 
  Country: None (occurrence: None)
  Receive Date: 20041025
  Receipt Date: 20040303
  Transmission Date: 20050328
  Serious: Yes (Other)
  Sender: FDA-Public Use
  Company Number: US-JNJFOC-20040102090

PATIENT
  Age: 55 Year
  Sex: Female
  Weight: 79.8331 kg

DRUGS (6)
  1. REMICADE [Suspect]
     Indication: RHEUMATOID ARTHRITIS
     Dosage: INTRAVENOUS
     Route: 042
     Dates: start: 20010601, end: 20030801
  2. METHOTREXATE [Concomitant]
  3. ATENOLOL [Concomitant]
  4. FOLIC ACID [Concomitant]
  5. LEVOTHYROID (LEVOTHYROXINE) [Concomitant]
  6. VICODIN [Concomitant]

REACTIONS (1)
  - BREAST CANCER [None]
